FAERS Safety Report 4911960-4 (Version None)
Quarter: 2006Q1

REPORT INFORMATION
  Report Type: 
  Country: None (occurrence: None)
  Receive Date: 20060215
  Receipt Date: 20060104
  Transmission Date: 20060701
  Serious: Yes (Death, Hospitalization)
  Sender: FDA-Public Use
  Company Number: US-BRISTOL-MYERS SQUIBB COMPANY-13235882

PATIENT
  Age: 63 Year
  Sex: Female

DRUGS (8)
  1. TAXOL [Suspect]
     Indication: BREAST CANCER
     Route: 042
     Dates: start: 20051201, end: 20051201
  2. PARAPLATIN [Suspect]
     Indication: BREAST CANCER
     Route: 042
     Dates: start: 20051201, end: 20051201
  3. DECADRON SRC [Concomitant]
     Route: 042
     Dates: start: 20051201, end: 20051201
  4. ANZEMET [Concomitant]
     Route: 042
     Dates: start: 20051201, end: 20051201
  5. CYTOXAN [Concomitant]
     Route: 042
     Dates: start: 20051201, end: 20051201
  6. KYTRIL [Concomitant]
     Route: 048
     Dates: start: 20051201, end: 20051201
  7. BENADRYL [Concomitant]
     Route: 042
     Dates: start: 20051201, end: 20051201
  8. NOVANTRONE [Concomitant]
     Route: 042
     Dates: start: 20051201, end: 20051201

REACTIONS (1)
  - MALIGNANT NEOPLASM PROGRESSION [None]
